FAERS Safety Report 15752016 (Version 2)
Quarter: 2019Q1

REPORT INFORMATION
  Report Type: Report from Study
  Country: GE (occurrence: GE)
  Receive Date: 20181221
  Receipt Date: 20190108
  Transmission Date: 20190417
  Serious: Yes (Life-Threatening, Hospitalization)
  Sender: FDA-Public Use
  Company Number: GE-PFIZER INC-2018523082

PATIENT
  Age: 58 Year
  Sex: Male
  Weight: 83 kg

DRUGS (10)
  1. IRINOTECAN HCL [Suspect]
     Active Substance: IRINOTECAN HYDROCHLORIDE
     Indication: SMALL CELL LUNG CANCER
     Dosage: UNK UNK, CYCLE 1
     Route: 041
     Dates: start: 20180723
  2. IRINOTECAN HCL [Suspect]
     Active Substance: IRINOTECAN HYDROCHLORIDE
     Dosage: UNK
     Route: 041
  3. IRINOTECAN HCL [Suspect]
     Active Substance: IRINOTECAN HYDROCHLORIDE
     Dosage: 700 MG, TOTAL DAILY DOSE, CYCLE 6
     Route: 041
     Dates: start: 20181112, end: 20181206
  4. AMITRIPTYLINE [Concomitant]
     Active Substance: AMITRIPTYLINE
     Dosage: UNK
     Dates: start: 20181128
  5. FILGRASTIM [Concomitant]
     Active Substance: FILGRASTIM
     Dosage: UNK
     Dates: start: 20181113, end: 20181113
  6. DINUTUXIMAB [Suspect]
     Active Substance: DINUTUXIMAB
     Dosage: UNK
     Route: 041
  7. DINUTUXIMAB [Suspect]
     Active Substance: DINUTUXIMAB
     Dosage: 32 MG, TOTAL DAILY DOSE, CYCLE 6
     Route: 041
     Dates: start: 20181112, end: 20181206
  8. IRINOTECAN HCL [Suspect]
     Active Substance: IRINOTECAN HYDROCHLORIDE
     Dosage: UNK
     Route: 041
  9. KETOROLAC [Concomitant]
     Active Substance: KETOROLAC\KETOROLAC TROMETHAMINE
     Dosage: UNK
     Dates: start: 20181128
  10. DINUTUXIMAB [Suspect]
     Active Substance: DINUTUXIMAB
     Indication: SMALL CELL LUNG CANCER
     Dosage: UNK UNK, CYCLE 1
     Route: 041
     Dates: start: 20180723

REACTIONS (1)
  - Hyponatraemia [Recovered/Resolved]

NARRATIVE: CASE EVENT DATE: 20181203
